FAERS Safety Report 12929766 (Version 1)
Quarter: 2016Q4

REPORT INFORMATION
  Report Type: Spontaneous
  Country: US (occurrence: US)
  Receive Date: 20161110
  Receipt Date: 20161110
  Transmission Date: 20170207
  Serious: Yes (Death)
  Sender: FDA-Public Use
  Company Number: US-SAGENTPRD-2016-US-000049

PATIENT
  Sex: 0

DRUGS (2)
  1. DOXORUBICIN HYDROCHLORIDE INJECTION, USP [Suspect]
     Active Substance: DOXORUBICIN HYDROCHLORIDE
     Dosage: 1.5 MG/M2 1-5 COURSES
  2. CISPLATIN. [Concomitant]
     Active Substance: CISPLATIN
     Dosage: 7.5 MG/M2

REACTIONS (1)
  - Death [Fatal]
